FAERS Safety Report 23152479 (Version 2)
Quarter: 2023Q4

REPORT INFORMATION
  Report Type: Report from Study
  Country: US (occurrence: US)
  Receive Date: 20231107
  Receipt Date: 20231111
  Transmission Date: 20240110
  Serious: Yes (Other)
  Sender: FDA-Public Use
  Company Number: US-ABBVIE-5475821

PATIENT
  Age: 51 Year
  Sex: Male

DRUGS (16)
  1. VENCLEXTA [Suspect]
     Active Substance: VENETOCLAX
     Indication: Chronic lymphocytic leukaemia
     Dosage: STRENGTH: 100 MG, TAKE 4 TABLET(S) BY MOUTH DAILY?LINE OF THERAPY: 2ND
     Route: 048
  2. VENCLEXTA [Suspect]
     Active Substance: VENETOCLAX
     Indication: Chronic lymphocytic leukaemia
     Dosage: TAKE 20MG(2X10MG TABS) BY MOUTH EVERY DAY ON WEEK 1, LAST ADMIN DATE: 2023
     Route: 048
     Dates: start: 20231004
  3. VENCLEXTA [Suspect]
     Active Substance: VENETOCLAX
     Indication: Chronic lymphocytic leukaemia
     Dosage: STRENGTH-50 MG?THEN, 50MG(1X50MG TAB) DAILY BY MOUTH WEEK 2 FIRST ADMIN DATE: 2023 LAST ADMIN DAT...
     Route: 048
  4. VENCLEXTA [Suspect]
     Active Substance: VENETOCLAX
     Indication: Chronic lymphocytic leukaemia
     Dosage: THEN, 100MG(1X100MG TAB) BY MOUTH DAILY WEEK 3,  FIRST ADMIN DATE: 2023 LAST ADMIN DATE: 2023
     Route: 048
  5. VENCLEXTA [Suspect]
     Active Substance: VENETOCLAX
     Indication: Chronic lymphocytic leukaemia
     Dosage: THEN, 200MG(2X100MG TABS) DAILY WEEK 4, FIRST ADMIN DATE: 2023 LAST ADMIN DATE: 2023
     Route: 048
  6. VENCLEXTA [Suspect]
     Active Substance: VENETOCLAX
     Indication: Chronic lymphocytic leukaemia
     Dosage: TAKE 3 TABLETS BY MOUTH EVERY MORNING,  FIRST ADMIN DATE: 2023
     Route: 048
  7. RITUXAN [Suspect]
     Active Substance: RITUXIMAB
     Indication: Chronic lymphocytic leukaemia
     Dosage: DAY 1 AND DAYS 15 EVERY 28 DAYS, LINE OF THERAPY: 2ND
     Route: 065
     Dates: start: 20231004
  8. ALBUTEROL SULFATE [Concomitant]
     Active Substance: ALBUTEROL SULFATE
     Indication: Product used for unknown indication
     Dosage: 108 MCG/ACT INHALER
  9. BUSPAR [Concomitant]
     Active Substance: BUSPIRONE HYDROCHLORIDE
     Indication: Product used for unknown indication
  10. LASIX [Concomitant]
     Active Substance: FUROSEMIDE
     Indication: Product used for unknown indication
  11. NEURONTIN [Concomitant]
     Active Substance: GABAPENTIN
     Indication: Product used for unknown indication
  12. ATARAX [Concomitant]
     Active Substance: HYDROXYZINE HYDROCHLORIDE
     Indication: Product used for unknown indication
  13. MELATONIN [Concomitant]
     Active Substance: MELATONIN
     Indication: Product used for unknown indication
  14. CORGARD [Concomitant]
     Active Substance: NADOLOL
     Indication: Product used for unknown indication
  15. PHENERGAN [Concomitant]
     Active Substance: PROMETHAZINE HYDROCHLORIDE
     Indication: Product used for unknown indication
  16. DESYREL [Concomitant]
     Active Substance: TRAZODONE HYDROCHLORIDE
     Indication: Product used for unknown indication

REACTIONS (17)
  - Neutropenia [Unknown]
  - Hyperbilirubinaemia [Unknown]
  - Leukocytosis [Unknown]
  - Depression [Unknown]
  - Varices oesophageal [Unknown]
  - Oedema peripheral [Unknown]
  - Thrombocytopenia [Unknown]
  - Dyspnoea [Unknown]
  - Hepatitis alcoholic [Unknown]
  - Hyponatraemia [Unknown]
  - Brain natriuretic peptide increased [Unknown]
  - Lymphadenopathy [Unknown]
  - Hydrocele [Unknown]
  - Anaemia [Unknown]
  - Alcohol abuse [Unknown]
  - Splenomegaly [Unknown]
  - Anxiety [Unknown]

NARRATIVE: CASE EVENT DATE: 20231024
